FAERS Safety Report 20699946 (Version 1)
Quarter: 2022Q2

REPORT INFORMATION
  Report Type: Spontaneous
  Country: US (occurrence: None)
  Receive Date: 20220409
  Receipt Date: 20220409
  Transmission Date: 20220721
  Serious: Yes (Other)
  Sender: FDA-Public Use
  Company Number: None

PATIENT
  Age: 66 Year
  Sex: Female
  Weight: 56.25 kg

DRUGS (11)
  1. WIXELA INHUB [Suspect]
     Active Substance: FLUTICASONE PROPIONATE\SALMETEROL XINAFOATE
     Indication: Asthma
     Dosage: OTHER QUANTITY : 2 INHALATION(S);?FREQUENCY : DAILY;?
     Route: 055
     Dates: start: 20220121, end: 20220329
  2. SPIRIVA [Concomitant]
     Active Substance: TIOTROPIUM BROMIDE MONOHYDRATE
  3. TRAZODONE [Concomitant]
     Active Substance: TRAZODONE HYDROCHLORIDE
  4. ALBUTEROL SULFATE [Concomitant]
     Active Substance: ALBUTEROL SULFATE
  5. MONTELUKAST [Concomitant]
     Active Substance: MONTELUKAST SODIUM
  6. Alive vitamins [Concomitant]
  7. cholestoff [Concomitant]
  8. glucosamine chondroiten [Concomitant]
  9. FISH OIL [Concomitant]
     Active Substance: FISH OIL
  10. whey isolate [Concomitant]
  11. collagen and primal greens [Concomitant]

REACTIONS (8)
  - Candida infection [None]
  - Cough [None]
  - Dry throat [None]
  - Dry mouth [None]
  - Chest pain [None]
  - Product substitution issue [None]
  - Insurance issue [None]
  - Suspected product quality issue [None]

NARRATIVE: CASE EVENT DATE: 20220302
